FAERS Safety Report 25267555 (Version 1)
Quarter: 2025Q2

REPORT INFORMATION
  Report Type: Report from Study
  Country: KR (occurrence: KR)
  Receive Date: 20250505
  Receipt Date: 20250505
  Transmission Date: 20250717
  Serious: Yes (Other)
  Sender: Haleon PLC
  Company Number: KR-HALEON-2240595

PATIENT
  Age: 64 Year
  Sex: Female

DRUGS (2)
  1. DICLOFENAC [Suspect]
     Active Substance: DICLOFENAC
     Indication: Product used for unknown indication
  2. DICLOFENAC [Suspect]
     Active Substance: DICLOFENAC

REACTIONS (4)
  - Anaphylactic reaction [Unknown]
  - Hypotension [Unknown]
  - Hypersensitivity [Unknown]
  - Loss of consciousness [Unknown]
